FAERS Safety Report 6143409-0 (Version None)
Quarter: 2009Q2

REPORT INFORMATION
  Report Type: 
  Country: None (occurrence: None)
  Receive Date: 20090403
  Receipt Date: 20090324
  Transmission Date: 20091009
  Serious: Yes (Hospitalization)
  Sender: FDA-Public Use
  Company Number: US-JNJFOC-20090306724

PATIENT
  Sex: Female
  Weight: 32.3 kg

DRUGS (9)
  1. INFLIXIMAB [Suspect]
     Indication: CROHN'S DISEASE
     Route: 042
  2. METHOTREXATE [Concomitant]
  3. MULTIVITAMIN WITH IRON [Concomitant]
  4. CALCIUM [Concomitant]
  5. FLAX SEED OIL [Concomitant]
  6. BUDESONIDE [Concomitant]
  7. CLANTIN [Concomitant]
  8. ZINC [Concomitant]
  9. 5-ASA [Concomitant]
     Route: 048

REACTIONS (1)
  - CROHN'S DISEASE [None]
